FAERS Safety Report 16566612 (Version 1)
Quarter: 2019Q3

REPORT INFORMATION
  Report Type: Report from Study
  Country: None (occurrence: RO)
  Receive Date: 20190712
  Receipt Date: 20190712
  Transmission Date: 20191004
  Serious: Yes (Hospitalization)
  Sender: FDA-Public Use
  Company Number: RO-ABBVIE-19K-135-2846743-00

PATIENT
  Age: 6 Year

DRUGS (3)
  1. HUMIRA [Suspect]
     Active Substance: ADALIMUMAB
     Dosage: SECOND DOSE
     Route: 058
     Dates: start: 20190705
  2. SALOFALK [Concomitant]
     Indication: CROHN^S DISEASE
     Dosage: UNKNOWN
     Route: 048
  3. HUMIRA [Suspect]
     Active Substance: ADALIMUMAB
     Indication: CROHN^S DISEASE
     Route: 058
     Dates: start: 20190619, end: 2019

REACTIONS (9)
  - Malnutrition [Not Recovered/Not Resolved]
  - Device issue [Unknown]
  - Abdominal pain [Recovering/Resolving]
  - Weight decreased [Recovering/Resolving]
  - Anaemia [Recovering/Resolving]
  - Oedema [Recovering/Resolving]
  - Gastrointestinal haemorrhage [Recovering/Resolving]
  - Product quality issue [Unknown]
  - Hypoalbuminaemia [Not Recovered/Not Resolved]

NARRATIVE: CASE EVENT DATE: 2019
